FAERS Safety Report 7984062-0 (Version None)
Quarter: 2011Q4

REPORT INFORMATION
  Report Type: 
  Country: None (occurrence: None)
  Receive Date: 20111216
  Receipt Date: 20111212
  Transmission Date: 20120403
  Serious: Yes (Other)
  Sender: FDA-Public Use
  Company Number: ES-PFIZER INC-2011301853

PATIENT
  Age: 50 Year
  Sex: Female

DRUGS (6)
  1. ENALAPRIL [Concomitant]
  2. ALDACTONE [Concomitant]
     Dosage: 100 MG, UNK
  3. ALPRAZOLAM [Concomitant]
  4. LYRICA [Concomitant]
     Dosage: 75 MG, UNK
  5. ATENOLOL [Concomitant]
  6. SUTENT [Suspect]
     Indication: RENAL CANCER
     Dosage: 50 MG, UNK
     Route: 065
     Dates: start: 20100401, end: 20110901

REACTIONS (3)
  - FOLATE DEFICIENCY [None]
  - HYPOTHYROIDISM [None]
  - VITAMIN B12 DEFICIENCY [None]
